FAERS Safety Report 23365336 (Version 2)
Quarter: 2024Q1

REPORT INFORMATION
  Report Type: Spontaneous
  Country: DE (occurrence: DE)
  Receive Date: 20240104
  Receipt Date: 20240319
  Transmission Date: 20240410
  Serious: Yes (Other)
  Sender: FDA-Public Use
  Company Number: DE-002147023-NVSC2023DE275716

PATIENT
  Age: 17 Year
  Sex: Female

DRUGS (7)
  1. OCTREOTIDE [Suspect]
     Active Substance: OCTREOTIDE\OCTREOTIDE ACETATE
     Indication: Thymic carcinoma
     Dosage: UNK
     Route: 065
  2. OCTREOTIDE [Suspect]
     Active Substance: OCTREOTIDE\OCTREOTIDE ACETATE
  3. OCTREOTIDE [Suspect]
     Active Substance: OCTREOTIDE\OCTREOTIDE ACETATE
  4. ALISERTIB [Concomitant]
     Active Substance: ALISERTIB
     Indication: Thymic carcinoma
     Dosage: UNK
     Route: 065
  5. PEMBROLIZUMAB [Concomitant]
     Active Substance: PEMBROLIZUMAB
     Indication: Thymic carcinoma
     Dosage: UNK
     Route: 065
  6. VORINOSTAT [Concomitant]
     Active Substance: VORINOSTAT
     Indication: Thymic carcinoma
     Dosage: UNK
     Route: 065
  7. NAVITOCLAX [Concomitant]
     Active Substance: NAVITOCLAX
     Indication: Thymic carcinoma
     Dosage: UNK
     Route: 065

REACTIONS (4)
  - Thymic carcinoma [Not Recovered/Not Resolved]
  - Malignant neoplasm progression [Not Recovered/Not Resolved]
  - Product use issue [Unknown]
  - Off label use [Unknown]
